FAERS Safety Report 8300463-5 (Version None)
Quarter: 2012Q2

REPORT INFORMATION
  Report Type: 
  Country: None (occurrence: None)
  Receive Date: 20120417
  Receipt Date: 20120403
  Transmission Date: 20120825
  Serious: Yes (Hospitalization)
  Sender: FDA-Public Use
  Company Number: MPS1-1000667

PATIENT
  Age: 37 Year
  Sex: Female

DRUGS (1)
  1. ALDURAZYME [Suspect]
     Indication: MUCOPOLYSACCHARIDOSIS I
     Dosage: UNK, INTRAVENOUS
     Route: 042

REACTIONS (8)
  - INTERVERTEBRAL DISC DISORDER [None]
  - RESPIRATORY DISORDER [None]
  - PHARYNGEAL OEDEMA [None]
  - PROCEDURAL PAIN [None]
  - DRUG EFFECT DECREASED [None]
  - PROCEDURAL HAEMORRHAGE [None]
  - SWELLING FACE [None]
  - PROCEDURAL COMPLICATION [None]
